FAERS Safety Report 6183838-2 (Version None)
Quarter: 2009Q2

REPORT INFORMATION
  Report Type: 
  Country: None (occurrence: None)
  Receive Date: 20090508
  Receipt Date: 20090424
  Transmission Date: 20091009
  Serious: Yes (Hospitalization, Other)
  Sender: FDA-Public Use
  Company Number: US-ROCHE-596097

PATIENT
  Sex: Male
  Weight: 93 kg

DRUGS (2)
  1. ACCUTANE [Suspect]
     Route: 065
     Dates: start: 20010223, end: 20010621
  2. ACCUTANE [Suspect]
     Route: 065
     Dates: start: 20020102, end: 20020915

REACTIONS (13)
  - ABDOMINAL ABSCESS [None]
  - CHEILITIS [None]
  - CROHN'S DISEASE [None]
  - DEPRESSION [None]
  - DRY SKIN [None]
  - EPISTAXIS [None]
  - FRACTURE [None]
  - GASTROOESOPHAGEAL REFLUX DISEASE [None]
  - ILEAL PERFORATION [None]
  - INFLAMMATORY BOWEL DISEASE [None]
  - INTESTINAL OBSTRUCTION [None]
  - LIP DRY [None]
  - PROCTITIS ULCERATIVE [None]
